FAERS Safety Report 21424776 (Version 3)
Quarter: 2022Q4

REPORT INFORMATION
  Report Type: Report from Study
  Country: US (occurrence: US)
  Receive Date: 20221008
  Receipt Date: 20221101
  Transmission Date: 20230112
  Serious: Yes (Hospitalization, Other)
  Sender: FDA-Public Use
  Company Number: US-BRISTOL-MYERS SQUIBB COMPANY-2022-115970

PATIENT
  Age: 56 Year
  Sex: Female
  Weight: 72.9 kg

DRUGS (4)
  1. NIVOLUMAB [Suspect]
     Active Substance: NIVOLUMAB
     Indication: Malignant melanoma
     Dosage: 1MG/KG IV (Q3WEEKS DOSING FOR 4 CYCLES)
     Route: 042
     Dates: start: 20220913, end: 20220913
  2. NIVOLUMAB [Suspect]
     Active Substance: NIVOLUMAB
  3. IPILIMUMAB [Suspect]
     Active Substance: IPILIMUMAB
     Indication: Malignant melanoma
     Dosage: 3MG/KG (Q3WEEKS DOSING FOR 4 CYCLES)
     Route: 065
     Dates: start: 20220913, end: 20220913
  4. IPILIMUMAB [Suspect]
     Active Substance: IPILIMUMAB

REACTIONS (8)
  - Pneumonia [Recovered/Resolved]
  - Benign neoplasm [Recovered/Resolved]
  - Musculoskeletal chest pain [Recovered/Resolved]
  - Back pain [Recovered/Resolved]
  - Cough [Recovered/Resolved]
  - Dyspnoea [Recovered/Resolved]
  - Pyrexia [Recovered/Resolved]
  - Pneumonitis [Unknown]

NARRATIVE: CASE EVENT DATE: 20220922
